FAERS Safety Report 25892658 (Version 2)
Quarter: 2025Q4

REPORT INFORMATION
  Report Type: Spontaneous
  Country: US (occurrence: US)
  Receive Date: 20251007
  Receipt Date: 20251008
  Transmission Date: 20260117
  Serious: No
  Sender: PFIZER
  Company Number: US-PFIZER INC-202500197515

PATIENT
  Age: 65 Year

DRUGS (2)
  1. PAXLOVID [Suspect]
     Active Substance: NIRMATRELVIR\RITONAVIR
     Indication: COVID-19
     Dosage: 1 DF, 2X/DAY (ONE IN THE MORNING THEN ONE IN THE EVENING)
  2. PAXLOVID [Suspect]
     Active Substance: NIRMATRELVIR\RITONAVIR
     Dosage: UNK (HALF OF DOSE)

REACTIONS (3)
  - Diarrhoea [Unknown]
  - Intentional underdose [Unknown]
  - Incorrect dose administered [Unknown]
